FAERS Safety Report 16314034 (Version 2)
Quarter: 2019Q2

REPORT INFORMATION
  Report Type: Spontaneous
  Country: US (occurrence: US)
  Receive Date: 20190515
  Receipt Date: 20190520
  Transmission Date: 20190711
  Serious: No
  Sender: FDA-Public Use
  Company Number: US-PFIZER INC-2019198254

PATIENT
  Age: 64 Year
  Sex: Male

DRUGS (2)
  1. CAVERJECT [Suspect]
     Active Substance: ALPROSTADIL
     Dosage: 20 UG, SINGLE
  2. CAVERJECT [Suspect]
     Active Substance: ALPROSTADIL
     Dosage: UNK

REACTIONS (5)
  - Expired product administered [Unknown]
  - Device issue [Unknown]
  - Device use issue [Unknown]
  - Product packaging issue [Unknown]
  - Drug ineffective [Unknown]
